FAERS Safety Report 8932512 (Version 1)
Quarter: 2012Q4

REPORT INFORMATION
  Report Type: Spontaneous
  Country: US (occurrence: None)
  Receive Date: 20121121
  Receipt Date: 20121121
  Transmission Date: 20130627
  Serious: No
  Sender: FDA-Public Use
  Company Number: None

PATIENT
  Sex: Male
  Weight: 81.65 kg

DRUGS (1)
  1. METFORMIN [Suspect]
     Indication: DIABETES
     Dosage: 1,000 mg. 2x a day by mouth
     Route: 048

REACTIONS (1)
  - Renal failure [None]
